FAERS Safety Report 8088008-9 (Version None)
Quarter: 2012Q1

REPORT INFORMATION
  Report Type: 
  Country: None (occurrence: None)
  Receive Date: 20120128
  Receipt Date: 20110611
  Transmission Date: 20120608
  Serious: No
  Sender: FDA-Public Use
  Company Number: US-ABBOTT-11P-163-0731778-00

PATIENT
  Age: 53 Year
  Sex: Female

DRUGS (2)
  1. SIMVASTATIN [Concomitant]
     Indication: BLOOD CHOLESTEROL INCREASED
     Dosage: 20MG DAILY
     Route: 048
  2. HUMIRA [Suspect]
     Indication: CROHN'S DISEASE
     Dates: start: 20110309

REACTIONS (3)
  - INCONTINENCE [None]
  - FREQUENT BOWEL MOVEMENTS [None]
  - DRUG EFFECT DECREASED [None]
